FAERS Safety Report 13648561 (Version 2)
Quarter: 2017Q3

REPORT INFORMATION
  Report Type: Spontaneous
  Country: GB (occurrence: GB)
  Receive Date: 20170613
  Receipt Date: 20170707
  Transmission Date: 20171127
  Serious: Yes (Hospitalization)
  Sender: FDA-Public Use
  Company Number: GB-EXELIXIS-CABO-17009415

PATIENT
  Age: 55 Year
  Sex: Female

DRUGS (1)
  1. CABOMETYX [Suspect]
     Active Substance: CABOZANTINIB S-MALATE
     Indication: RENAL CELL CARCINOMA
     Dosage: 60 MG, QD
     Route: 048
     Dates: start: 20170508, end: 20170609

REACTIONS (3)
  - Stomatitis [Unknown]
  - Hypophagia [Unknown]
  - Nausea [Unknown]

NARRATIVE: CASE EVENT DATE: 20170609
